FAERS Safety Report 23398732 (Version 1)
Quarter: 2024Q1

REPORT INFORMATION
  Report Type: Spontaneous
  Country: US (occurrence: US)
  Receive Date: 20240112
  Receipt Date: 20240112
  Transmission Date: 20240410
  Serious: Yes (Death, Hospitalization, Other)
  Sender: FDA-Public Use
  Company Number: US-PFIZER INC-202400008910

PATIENT
  Age: 32 Year
  Sex: Male

DRUGS (32)
  1. DOXEPIN HCL [Suspect]
     Active Substance: DOXEPIN HYDROCHLORIDE
     Dosage: UNK (INGESTION)
     Route: 048
  2. DOXEPIN HCL [Suspect]
     Active Substance: DOXEPIN HYDROCHLORIDE
     Dosage: UNK (ASPIRATION)
     Route: 050
  3. ACETAMINOPHEN [Suspect]
     Active Substance: ACETAMINOPHEN
     Dosage: UNK, INGESTION
     Route: 048
  4. ACETAMINOPHEN [Suspect]
     Active Substance: ACETAMINOPHEN
     Dosage: UNK ASPIRATION (WITH INGESTION)
     Route: 050
  5. BACLOFEN [Suspect]
     Active Substance: BACLOFEN
     Dosage: UNK, INGESTION
     Route: 048
  6. BACLOFEN [Suspect]
     Active Substance: BACLOFEN
     Dosage: UNK ASPIRATION (WITH INGESTION)
     Route: 050
  7. LAMOTRIGINE [Suspect]
     Active Substance: LAMOTRIGINE
     Dosage: UNK, INGESTION
     Route: 048
  8. LAMOTRIGINE [Suspect]
     Active Substance: LAMOTRIGINE
     Dosage: UNK ASPIRATION (WITH INGESTION)
     Route: 050
  9. SERTRALINE [Suspect]
     Active Substance: SERTRALINE HYDROCHLORIDE
     Dosage: UNK, INGESTION
     Route: 048
  10. SERTRALINE [Suspect]
     Active Substance: SERTRALINE HYDROCHLORIDE
     Dosage: UNK ASPIRATION (WITH INGESTION)
     Route: 050
  11. PREGABALIN [Suspect]
     Active Substance: PREGABALIN
     Dosage: UNK, INGESTION
     Route: 048
  12. PREGABALIN [Suspect]
     Active Substance: PREGABALIN
     Dosage: UNK ASPIRATION (WITH INGESTION)
     Route: 050
  13. TOPIRAMATE [Suspect]
     Active Substance: TOPIRAMATE
     Dosage: UNK, INGESTION
     Route: 048
  14. TOPIRAMATE [Suspect]
     Active Substance: TOPIRAMATE
     Dosage: UNK ASPIRATION (WITH INGESTION)
     Route: 050
  15. HYDROCHLOROTHIAZIDE [Suspect]
     Active Substance: HYDROCHLOROTHIAZIDE
     Dosage: UNK, INGESTION
     Route: 048
  16. HYDROCHLOROTHIAZIDE [Suspect]
     Active Substance: HYDROCHLOROTHIAZIDE
     Dosage: UNK ASPIRATION (WITH INGESTION)
     Route: 050
  17. DEUTETRABENAZINE [Suspect]
     Active Substance: DEUTETRABENAZINE
     Dosage: UNK, INGESTION
  18. DEUTETRABENAZINE [Suspect]
     Active Substance: DEUTETRABENAZINE
     Dosage: UNK ASPIRATION (WITH INGESTION)
     Route: 050
  19. CELECOXIB [Suspect]
     Active Substance: CELECOXIB
     Dosage: UNK, INGESTION
     Route: 048
  20. CELECOXIB [Suspect]
     Active Substance: CELECOXIB
     Dosage: UNK ASPIRATION (WITH INGESTION)
     Route: 050
  21. OMEPRAZOLE [Suspect]
     Active Substance: OMEPRAZOLE
     Dosage: UNK, INGESTION
     Route: 048
  22. OMEPRAZOLE [Suspect]
     Active Substance: OMEPRAZOLE
     Dosage: UNK ASPIRATION (WITH INGESTION)
     Route: 050
  23. EZETIMIBE [Suspect]
     Active Substance: EZETIMIBE
     Dosage: UNK, INGESTION
     Route: 048
  24. EZETIMIBE [Suspect]
     Active Substance: EZETIMIBE
     Dosage: UNK ASPIRATION (WITH INGESTION)
     Route: 050
  25. LEVOCETIRIZINE [Suspect]
     Active Substance: LEVOCETIRIZINE
     Dosage: UNK, INGESTION
     Route: 048
  26. LEVOCETIRIZINE [Suspect]
     Active Substance: LEVOCETIRIZINE
     Dosage: UNK ASPIRATION (WITH INGESTION)
     Route: 050
  27. DOCUSATE [Suspect]
     Active Substance: DOCUSATE
     Dosage: UNK, INGESTION
     Route: 048
  28. DOCUSATE [Suspect]
     Active Substance: DOCUSATE
     Dosage: UNK, ASPIRATION (WITH INGESTION)
     Route: 050
  29. MELATONIN [Suspect]
     Active Substance: MELATONIN
     Dosage: UNK, INGESTION
     Route: 048
  30. MELATONIN [Suspect]
     Active Substance: MELATONIN
     Dosage: UNK ASPIRATION (WITH INGESTION)
     Route: 050
  31. VITAMIN D NOS [Suspect]
     Active Substance: VITAMIN D NOS
     Dosage: UNK, INGESTION
     Route: 048
  32. VITAMIN D NOS [Suspect]
     Active Substance: VITAMIN D NOS
     Dosage: UNK, ASPIRATION (WITH INGESTION)
     Route: 050

REACTIONS (1)
  - Completed suicide [Fatal]

NARRATIVE: CASE EVENT DATE: 20220101
